FAERS Safety Report 11321304 (Version 1)
Quarter: 2015Q3

REPORT INFORMATION
  Report Type: Spontaneous
  Country: PL (occurrence: PL)
  Receive Date: 20150729
  Receipt Date: 20150729
  Transmission Date: 20151125
  Serious: Yes (Hospitalization, Other)
  Sender: FDA-Public Use
  Company Number: PL-ROXANE LABORATORIES, INC.-2015-BI-39703PN

PATIENT
  Age: 62 Year
  Sex: Female

DRUGS (19)
  1. BISOPROLOL [Suspect]
     Active Substance: BISOPROLOL
     Indication: BLOOD PRESSURE INCREASED
     Route: 065
  2. DOXAZOSIN [Suspect]
     Active Substance: DOXAZOSIN\DOXAZOSIN MESYLATE
     Dosage: 16 MG
     Route: 065
  3. URAPIDIL [Suspect]
     Active Substance: URAPIDIL
     Indication: BLOOD PRESSURE INCREASED
     Route: 042
  4. METOPROLOL SUCCINATE. [Suspect]
     Active Substance: METOPROLOL SUCCINATE
     Indication: BLOOD PRESSURE INCREASED
     Dosage: 50 MG
     Route: 065
  5. NITRENDIPINE [Suspect]
     Active Substance: NITRENDIPINE
     Indication: BLOOD PRESSURE INCREASED
     Dosage: 40 MG
     Route: 065
  6. CATAPRES [Suspect]
     Active Substance: CLONIDINE HYDROCHLORIDE
     Dosage: 450 MG
     Route: 065
  7. SPIRONOLACTONE. [Suspect]
     Active Substance: SPIRONOLACTONE
     Indication: BLOOD PRESSURE INCREASED
     Dosage: 25 MG
     Route: 065
  8. METOPROLOL SUCCINATE. [Suspect]
     Active Substance: METOPROLOL SUCCINATE
     Dosage: 100 MG
     Route: 065
  9. NITROGLYCERIN. [Suspect]
     Active Substance: NITROGLYCERIN
     Indication: BLOOD PRESSURE INCREASED
     Route: 042
  10. ENALAPRIL [Suspect]
     Active Substance: ENALAPRIL
     Indication: BLOOD PRESSURE INCREASED
     Dosage: 40 MG
     Route: 065
  11. CATAPRES [Suspect]
     Active Substance: CLONIDINE HYDROCHLORIDE
     Indication: BLOOD PRESSURE INCREASED
     Dosage: 225 MG
     Route: 065
  12. MICARDIS [Suspect]
     Active Substance: TELMISARTAN
     Indication: BLOOD PRESSURE INCREASED
     Route: 065
  13. FUROSEMIDE. [Suspect]
     Active Substance: FUROSEMIDE
     Dosage: 120 MG
     Route: 065
  14. FUROSEMIDE. [Suspect]
     Active Substance: FUROSEMIDE
     Dosage: 160 MG
     Route: 065
  15. DOXAZOSIN [Suspect]
     Active Substance: DOXAZOSIN\DOXAZOSIN MESYLATE
     Indication: BLOOD PRESSURE INCREASED
     Dosage: 8 MG
     Route: 065
  16. NITROGLYCERIN. [Suspect]
     Active Substance: NITROGLYCERIN
     Dosage: 160 MG
     Route: 065
  17. FUROSEMIDE. [Suspect]
     Active Substance: FUROSEMIDE
     Indication: BLOOD PRESSURE INCREASED
     Dosage: 40 MG
     Route: 065
  18. URAPIDIL [Suspect]
     Active Substance: URAPIDIL
     Dosage: 160 MG
     Route: 065
  19. AMLODIPINE [Suspect]
     Active Substance: AMLODIPINE BESYLATE
     Indication: BLOOD PRESSURE INCREASED
     Dosage: 10 MG
     Route: 065

REACTIONS (6)
  - Pulmonary oedema [Unknown]
  - Deep vein thrombosis [Unknown]
  - Blood creatinine increased [Unknown]
  - Chronic kidney disease [Unknown]
  - Drug ineffective [Unknown]
  - Blood pressure increased [Unknown]
